FAERS Safety Report 6696006 (Version 14)
Quarter: 2013Q1

REPORT INFORMATION
  Report Type: Spontaneous
  Country: US (occurrence: US)
  Receive Date: 20080710
  Receipt Date: 20130102
  Transmission Date: 20140127
  Serious: Yes (Hospitalization, Congenital Anomaly, Other)
  Sender: FDA-Public Use
  Company Number: US-PFIZER INC-2008054872

PATIENT
  Sex: Female
  Weight: 3.2 kg

DRUGS (11)
  1. ZOLOFT [Suspect]
     Indication: DEPRESSION
     Dosage: 100 MG, 1X/DAY
     Route: 064
  2. ZOLOFT [Suspect]
     Dosage: UNK
     Route: 064
     Dates: start: 2002
  3. DIFLUCAN [Concomitant]
     Dosage: UNK
     Route: 064
  4. ZITHROMAX [Concomitant]
     Dosage: UNK
     Route: 064
  5. AMOXICILLIN [Concomitant]
     Dosage: UNK
     Route: 064
  6. TYLENOL [Concomitant]
     Dosage: UNK
     Route: 064
  7. MOTRIN [Concomitant]
     Dosage: UNK
     Route: 064
  8. VISTARIL [Concomitant]
     Dosage: UNK
     Route: 064
  9. PRENATAL VITAMINS [Concomitant]
     Dosage: UNK
     Route: 064
  10. GYNE-LOTRIMIN (SUPPOSITORIES) [Concomitant]
     Dosage: UNK
     Route: 064
  11. GYNAZOLE [Concomitant]
     Dosage: UNK
     Route: 064

REACTIONS (15)
  - Foetal exposure during pregnancy [Unknown]
  - Atrial septal defect [Recovered/Resolved]
  - Mitral valve disease [Not Recovered/Not Resolved]
  - Patent ductus arteriosus [Unknown]
  - Haemangioma [Unknown]
  - Cardiomegaly [Unknown]
  - Otitis media [Unknown]
  - Upper respiratory tract infection [Unknown]
  - Viral rash [Unknown]
  - Viral infection [Unknown]
  - Bronchitis [Unknown]
  - Sinusitis [Unknown]
  - Dermatitis atopic [Unknown]
  - Tremor [Unknown]
  - Congenital anomaly [Unknown]
